FAERS Safety Report 18145917 (Version 1)
Quarter: 2020Q3

REPORT INFORMATION
  Report Type: Other
  Country: CN (occurrence: CN)
  Receive Date: 20200813
  Receipt Date: 20200813
  Transmission Date: 20201103
  Serious: Yes (Other)
  Sender: FDA-Public Use
  Company Number: CN-INNOGENIX, LLC-2088577

PATIENT
  Age: 60 Year
  Sex: Male

DRUGS (7)
  1. CEFOPERAZONE?SULBACTUM [Concomitant]
     Route: 065
  2. HEPARIN [Concomitant]
     Active Substance: HEPARIN SODIUM
     Route: 065
  3. IMIPENEM [Suspect]
     Active Substance: IMIPENEM
     Route: 065
  4. CEPHALOSPORIN [Concomitant]
     Active Substance: UNSPECIFIED INGREDIENT
     Route: 065
  5. INSULIN [Concomitant]
     Active Substance: INSULIN NOS
     Route: 065
  6. METRONIDAZOLE. [Suspect]
     Active Substance: METRONIDAZOLE
     Indication: PNEUMONIA KLEBSIELLA
     Route: 065
  7. NIFEDIPINE. [Concomitant]
     Active Substance: NIFEDIPINE
     Route: 048

REACTIONS (1)
  - Drug ineffective [Unknown]
